FAERS Safety Report 12324966 (Version 2)
Quarter: 2016Q3

REPORT INFORMATION
  Report Type: Spontaneous
  Country: CA (occurrence: CA)
  Receive Date: 20160502
  Receipt Date: 20160720
  Transmission Date: 20161109
  Serious: No
  Sender: FDA-Public Use
  Company Number: CA-MYLANLABS-2016M1017796

PATIENT

DRUGS (3)
  1. MEMANTINE. [Suspect]
     Active Substance: MEMANTINE
     Dosage: 5MG PER WEEK
     Route: 048
  2. MEMANTINE. [Suspect]
     Active Substance: MEMANTINE
     Dosage: 10 MG BID (MAINTENANCE DOSE)
     Route: 048
  3. MEMANTINE. [Suspect]
     Active Substance: MEMANTINE
     Indication: FRONTOTEMPORAL DEMENTIA
     Dosage: 5MG PER MORNING
     Route: 048

REACTIONS (2)
  - Off label use [Recovering/Resolving]
  - No adverse event [Recovered/Resolved]
